FAERS Safety Report 9390449 (Version 1)
Quarter: 2013Q2

REPORT INFORMATION
  Report Type: Spontaneous
  Country: US (occurrence: None)
  Receive Date: 20130627
  Receipt Date: 20130627
  Transmission Date: 20140414
  Serious: Yes (Hospitalization)
  Sender: FDA-Public Use
  Company Number: 2013PROUSA02893

PATIENT
  Age: 62 Year
  Sex: Male

DRUGS (16)
  1. PROVENGE (SIPULEUCEL-T) SUSPENSION, 250ML [Suspect]
     Indication: PROSTATE CANCER METASTATIC
     Dosage: 250 ML, SINGLE, INTRAVENOUS
     Route: 042
     Dates: start: 20130603, end: 20130603
  2. TRAZODONE [Suspect]
     Dosage: 50 MG, QD, PRN
  3. LEUPROLIDE (LEUPROLIDE) [Suspect]
     Dosage: 22.5 MG Q 3 MONTHS
  4. ASPIRIN (ACETYLSALICYLIC ACID) [Concomitant]
  5. BUPROPION (BUPROPION) [Concomitant]
  6. CALCIUM PLUS VITAMIN D (CALCIUM, COLECALCIFEROL) [Concomitant]
  7. CRESTOR (ROSUVASTATIN CALCIUM) [Concomitant]
  8. GLYBURIDE (GILBENCLAMIDE) [Concomitant]
  9. LISINOPRIL (LISINOPRIL) [Concomitant]
  10. LORZEPAM (LORAZEPAM) [Concomitant]
  11. LOSARTAN (LOSARTAN POTASSIUM) [Concomitant]
  12. METFORMIN (METFORMIN HYDROCHLORIDE) [Concomitant]
  13. METOPROLOL (METOPROLOL TARTRATE) [Concomitant]
  14. NITROGLYCERN (GLYCERYL TRINITRATE) [Concomitant]
  15. OMEPRAZOLE (OMEPRAZOLE) [Concomitant]
  16. PRASUGRL (PRASUGREL HYDROCHLORIDE) [Concomitant]

REACTIONS (11)
  - Electrocardiogram QT prolonged [None]
  - Confusional state [None]
  - Dehydration [None]
  - Fatigue [None]
  - Dizziness [None]
  - Pollakiuria [None]
  - Hypersensitivity [None]
  - Tachypnoea [None]
  - Dyspnoea [None]
  - Pyrexia [None]
  - Asthenia [None]
